FAERS Safety Report 23693433 (Version 1)
Quarter: 2024Q2

REPORT INFORMATION
  Report Type: Spontaneous
  Country: US (occurrence: US)
  Receive Date: 20240401
  Receipt Date: 20240401
  Transmission Date: 20240715
  Serious: No
  Sender: FDA-Public Use
  Company Number: US-TEVA-VS-3140384

PATIENT
  Age: 37 Year
  Sex: Male

DRUGS (1)
  1. HYDROXOCOBALAMIN ACETATE [Suspect]
     Active Substance: HYDROXOCOBALAMIN ACETATE
     Dosage: STRENGTH: 1000 MCG / ML
     Route: 065

REACTIONS (2)
  - Drug ineffective [Unknown]
  - Incorrect route of product administration [Unknown]
